FAERS Safety Report 10589328 (Version 3)
Quarter: 2014Q4

REPORT INFORMATION
  Report Type: Spontaneous
  Country: US (occurrence: US)
  Receive Date: 20141118
  Receipt Date: 20141201
  Transmission Date: 20150529
  Serious: Yes (Death, Other)
  Sender: FDA-Public Use
  Company Number: US-009507513-1411USA007477

PATIENT
  Sex: Male
  Weight: 68.9 kg

DRUGS (2)
  1. EMEND [Suspect]
     Active Substance: APREPITANT
     Indication: NAUSEA
     Dosage: TRI PACK WEEKLY PER CHEMOTHERAPY, CYCLICAL
     Route: 048
     Dates: start: 20140520, end: 20141030
  2. EMEND [Suspect]
     Active Substance: APREPITANT
     Indication: NAUSEA
     Dosage: TRI PACK WEEKLY PER CHEMOTHERAPY, CYCLICAL
     Route: 048
     Dates: start: 20140520, end: 20141030

REACTIONS (1)
  - Lung carcinoma cell type unspecified stage IV [Fatal]
